FAERS Safety Report 11374413 (Version 2)
Quarter: 2015Q3

REPORT INFORMATION
  Report Type: Spontaneous
  Country: IT (occurrence: IT)
  Receive Date: 20150813
  Receipt Date: 20150818
  Transmission Date: 20151125
  Serious: Yes (Hospitalization)
  Sender: FDA-Public Use
  Company Number: IT-ROCHE-1617743

PATIENT
  Age: 62 Year
  Sex: Female

DRUGS (7)
  1. LORAZEPAM. [Concomitant]
     Active Substance: LORAZEPAM
  2. PANTOPRAZOLE SODIUM SESQUIHYDRATE [Concomitant]
     Active Substance: PANTOPRAZOLE SODIUM
  3. SERETIDE [Concomitant]
     Active Substance: FLUTICASONE FUROATE\SALMETEROL XINAFOATE
     Dosage: 25/50 MCG PRESSURISED INHALATION, SUSPENSION 1 X X 120 DOSE INHALER
     Route: 045
  4. CEFTRIAXONE SODIUM. [Suspect]
     Active Substance: CEFTRIAXONE SODIUM
     Indication: PRODUCT USED FOR UNKNOWN INDICATION
     Route: 065
  5. AMBROMUCIL [Suspect]
     Active Substance: AMBROXOL
     Indication: COUGH
     Route: 048
  6. DELTACORTENE [Concomitant]
     Active Substance: PREDNISONE
     Dosage: 25 MG TABLETS 10 TABLETS
     Route: 048
  7. LEXIL [Concomitant]
     Active Substance: BROMAZEPAM\PROPANTHELINE BROMIDE
     Dosage: 15 MG + 1.5 MG HARD CAPSULES, 20 CAPSULES
     Route: 048

REACTIONS (3)
  - Abdominal pain upper [Recovering/Resolving]
  - Dyspnoea [Recovering/Resolving]
  - Urticaria [Recovering/Resolving]

NARRATIVE: CASE EVENT DATE: 20150325
